FAERS Safety Report 9670876 (Version 6)
Quarter: 2014Q1

REPORT INFORMATION
  Report Type: Report from Study
  Country: CA (occurrence: CA)
  Receive Date: 20131106
  Receipt Date: 20140224
  Transmission Date: 20141002
  Serious: Yes (Death, Hospitalization, Other)
  Sender: FDA-Public Use
  Company Number: PHHY2013CA124728

PATIENT
  Age: 72 Year
  Sex: Male

DRUGS (4)
  1. SANDOSTATIN LAR [Suspect]
     Indication: PANCREATIC NEUROENDOCRINE TUMOUR
     Dosage: 30 MG, EVERY 4 WEEKS
     Route: 030
     Dates: start: 20130516
  2. SANDOSTATIN LAR [Suspect]
     Dosage: 30 MG, QMO
     Route: 030
     Dates: start: 20131028
  3. SANDOSTATIN LAR [Suspect]
     Dosage: 30 MG, QMO
     Route: 030
     Dates: start: 20131127
  4. SANDOSTATIN LAR [Suspect]
     Dosage: 30 MG, EVERY 4 WEEKS
     Route: 030
     Dates: end: 20131227

REACTIONS (16)
  - Death [Fatal]
  - Hip fracture [Unknown]
  - Labyrinthitis [Not Recovered/Not Resolved]
  - Cardiovascular disorder [Unknown]
  - Fall [Unknown]
  - Head injury [Unknown]
  - Arthralgia [Unknown]
  - Lung infection [Recovered/Resolved]
  - Terminal state [Unknown]
  - Musculoskeletal pain [Unknown]
  - Swelling [Unknown]
  - Dizziness [Unknown]
  - Dehydration [Unknown]
  - Diarrhoea [Recovered/Resolved]
  - Nausea [Unknown]
  - Headache [Unknown]
